FAERS Safety Report 6530929-X (Version None)
Quarter: 2010Q1

REPORT INFORMATION
  Report Type: 
  Country: None (occurrence: None)
  Receive Date: 20100108
  Receipt Date: 20090619
  Transmission Date: 20100710
  Serious: No
  Sender: FDA-Public Use
  Company Number: A0791234A

PATIENT
  Sex: Male

DRUGS (2)
  1. LOVAZA [Suspect]
     Indication: DRUG USE FOR UNKNOWN INDICATION
     Dosage: 1CAP FOUR TIMES PER DAY
     Route: 048
  2. STEROID [Suspect]
     Indication: DRUG USE FOR UNKNOWN INDICATION
     Route: 065

REACTIONS (6)
  - BLOOD PRESSURE INCREASED [None]
  - ERYTHEMA [None]
  - LOW DENSITY LIPOPROTEIN INCREASED [None]
  - PRURITUS [None]
  - SKIN DISCOLOURATION [None]
  - THERAPY REGIMEN CHANGED [None]
